FAERS Safety Report 15682685 (Version 1)
Quarter: 2018Q4

REPORT INFORMATION
  Report Type: Report from Study
  Country: US (occurrence: US)
  Receive Date: 20181203
  Receipt Date: 20181203
  Transmission Date: 20190205
  Serious: Yes (Hospitalization)
  Sender: FDA-Public Use
  Company Number: US-STASON PHARMACEUTICALS, INC.-2059585

PATIENT
  Age: 16 Year
  Sex: Female
  Weight: 94.3 kg

DRUGS (5)
  1. MERCAPTOPURINE. [Suspect]
     Active Substance: MERCAPTOPURINE
     Indication: B PRECURSOR TYPE ACUTE LEUKAEMIA
     Route: 048
     Dates: start: 20170620
  2. VINCRISTINE SULFATE. [Suspect]
     Active Substance: VINCRISTINE SULFATE
     Dates: start: 20170715
  3. PREDNISONE. [Suspect]
     Active Substance: PREDNISONE
     Dates: start: 20180424
  4. RUXOLITINIB [Suspect]
     Active Substance: RUXOLITINIB
     Dates: start: 20170620
  5. METHOTREXATE. [Suspect]
     Active Substance: METHOTREXATE
     Dates: start: 20170620

REACTIONS (4)
  - Gamma-glutamyltransferase increased [Recovered/Resolved]
  - Febrile neutropenia [Unknown]
  - Blood bilirubin increased [Recovered/Resolved]
  - Sepsis [Not Recovered/Not Resolved]

NARRATIVE: CASE EVENT DATE: 20180724
